FAERS Safety Report 7842242-9 (Version None)
Quarter: 2011Q4

REPORT INFORMATION
  Report Type: 
  Country: None (occurrence: None)
  Receive Date: 20111025
  Receipt Date: 20111019
  Transmission Date: 20120403
  Serious: Yes (Other)
  Sender: FDA-Public Use
  Company Number: GB-PFIZER INC-2011061014

PATIENT
  Age: 47 Year
  Sex: Female
  Weight: 62 kg

DRUGS (3)
  1. GENOTROPIN [Suspect]
     Dosage: 0.9 MG, 1X/DAY
     Route: 058
     Dates: start: 20110324, end: 20110810
  2. LEVOTHYROXINE [Concomitant]
     Indication: HYPOTHYROIDISM
     Dosage: 75 UG, 1X/DAY FOR 5 YEARS
     Route: 048
  3. WARFARIN [Concomitant]
     Indication: PULMONARY EMBOLISM
     Dosage: 3 AND 1MG ASD FOR 3 YEARS
     Route: 048

REACTIONS (6)
  - POOR QUALITY DRUG ADMINISTERED [None]
  - INCORRECT DOSE ADMINISTERED [None]
  - HEADACHE [None]
  - DRUG PRESCRIBING ERROR [None]
  - DYSARTHRIA [None]
  - EPISTAXIS [None]
